FAERS Safety Report 9051904 (Version 2)
Quarter: 2013Q1

REPORT INFORMATION
  Report Type: Report from Study
  Country: JP (occurrence: JP)
  Receive Date: 20130207
  Receipt Date: 20130219
  Transmission Date: 20140127
  Serious: Yes (Other)
  Sender: FDA-Public Use
  Company Number: JP-JNJFOC-20130107252

PATIENT
  Age: 67 None
  Sex: Male
  Weight: 73 kg

DRUGS (17)
  1. INVEGA [Suspect]
     Indication: SCHIZOPHRENIA, PARANOID TYPE
     Route: 048
     Dates: start: 20111202, end: 20121025
  2. ABILIFY [Suspect]
     Indication: SCHIZOPHRENIA, PARANOID TYPE
     Route: 048
     Dates: end: 20111212
  3. ABILIFY [Suspect]
     Indication: SCHIZOPHRENIA, PARANOID TYPE
     Route: 048
     Dates: start: 20111213, end: 20121025
  4. ABILIFY [Suspect]
     Indication: SCHIZOPHRENIA, PARANOID TYPE
     Route: 048
     Dates: start: 20121030
  5. ABILIFY [Suspect]
     Indication: SCHIZOPHRENIA, PARANOID TYPE
     Route: 048
     Dates: start: 20121028, end: 20121029
  6. LEVOTOMIN [Suspect]
     Indication: SCHIZOPHRENIA, PARANOID TYPE
     Route: 048
  7. VEGETAMIN-A [Suspect]
     Indication: SCHIZOPHRENIA, PARANOID TYPE
     Route: 048
  8. PYRETHIA [Suspect]
     Indication: PARKINSONISM
     Route: 048
  9. GOODMIN [Concomitant]
     Indication: INSOMNIA
     Route: 048
  10. QUAZEPAM [Concomitant]
     Indication: INSOMNIA
     Route: 048
  11. GASCON [Concomitant]
     Indication: FLATULENCE
     Route: 048
  12. MAGLAX [Concomitant]
     Indication: CONSTIPATION
     Route: 048
     Dates: start: 20111018
  13. STROMECTOL [Concomitant]
     Indication: ACARODERMATITIS
     Route: 048
     Dates: start: 20120104, end: 20120104
  14. STROMECTOL [Concomitant]
     Indication: ACARODERMATITIS
     Route: 048
     Dates: start: 20111228, end: 20111229
  15. TAMIFLU [Concomitant]
     Indication: INFLUENZA
     Route: 048
     Dates: start: 20120212, end: 20120216
  16. COCARL [Concomitant]
     Indication: INFLUENZA
     Route: 048
     Dates: start: 20120212, end: 20120216
  17. LACTEC [Concomitant]
     Route: 041
     Dates: start: 20121025, end: 20121029

REACTIONS (5)
  - Blood creatine phosphokinase increased [Recovered/Resolved]
  - Hyperprolactinaemia [Recovering/Resolving]
  - Acarodermatitis [Recovered/Resolved]
  - Influenza [Recovered/Resolved]
  - Weight increased [Not Recovered/Not Resolved]
